FAERS Safety Report 11893658 (Version 2)
Quarter: 2016Q1

REPORT INFORMATION
  Report Type: Spontaneous
  Country: US (occurrence: US)
  Receive Date: 20160106
  Receipt Date: 20160125
  Transmission Date: 20160526
  Serious: No
  Sender: FDA-Public Use
  Company Number: US-ALLERGAN-1600134US

PATIENT
  Age: 49 Year
  Sex: Female

DRUGS (2)
  1. PRED MILD [Suspect]
     Active Substance: PREDNISOLONE ACETATE
     Indication: PROPHYLAXIS AGAINST TRANSPLANT REJECTION
     Dosage: 1 GTT, QD
     Route: 047
     Dates: start: 1988
  2. PRED FORTE [Suspect]
     Active Substance: PREDNISOLONE ACETATE
     Indication: PROPHYLAXIS AGAINST TRANSPLANT REJECTION
     Dosage: UNK
     Route: 047
     Dates: start: 1987, end: 1988

REACTIONS (1)
  - No adverse event [Unknown]
